FAERS Safety Report 11857192 (Version 1)
Quarter: 2015Q4

REPORT INFORMATION
  Report Type: Spontaneous
  Country: CH (occurrence: CH)
  Receive Date: 20151221
  Receipt Date: 20151221
  Transmission Date: 20160305
  Serious: Yes (Life-Threatening, Hospitalization, Other)
  Sender: FDA-Public Use
  Company Number: CH-TEVA-617758ISR

PATIENT
  Age: 74 Year
  Sex: Male

DRUGS (11)
  1. NAPROXEN. [Interacting]
     Active Substance: NAPROXEN
     Indication: PAIN
     Route: 048
     Dates: start: 20151103, end: 20151106
  2. OXYCONTIN [Concomitant]
     Active Substance: OXYCODONE HYDROCHLORIDE
     Dosage: 20 MILLIGRAM DAILY; REPORTED AS:NO EXACT INFORMATION ON DURATION AND INDICATION
     Route: 048
     Dates: start: 20151105
  3. METO ZEROK [Concomitant]
     Active Substance: METOPROLOL SUCCINATE
     Dosage: 50 MILLIGRAM DAILY; REPORTED AS: NO EXACT INFORMATION ON DURATION AND INDICATION
     Route: 048
  4. AMIODARONE [Interacting]
     Active Substance: AMIODARONE
     Route: 048
  5. ASPIRIN CARDIO [Suspect]
     Active Substance: ASPIRIN
     Indication: ATRIAL FIBRILLATION
     Dosage: 100 MILLIGRAM DAILY; REPORTED AS: NO EXACT INFORMATION ON DURATION AND INDICATION
     Route: 048
  6. TORASEMID [Concomitant]
     Active Substance: TORSEMIDE
     Route: 048
  7. LISITRIL [Concomitant]
     Active Substance: LISINOPRIL
     Dosage: 5 MILLIGRAM DAILY; REPORTED AS: NO EXACT INFORMATION ON DURATION AND INDICATION
     Route: 048
  8. DAFALGAN [Concomitant]
     Active Substance: ACETAMINOPHEN
     Dosage: 4 GRAM DAILY; REPORTED AS:NO EXACT INFORMATION ON DURATION AND INDICATION
     Route: 048
     Dates: start: 20151101
  9. XARELTO [Interacting]
     Active Substance: RIVAROXABAN
     Indication: ATRIAL FIBRILLATION
     Dosage: 20 MILLIGRAM DAILY; REPORTED AS: NO EXACT INFORMATION ON DURATION AND INDICATION
     Route: 048
     Dates: start: 201504, end: 20151109
  10. ESOMEP [Concomitant]
     Active Substance: ESOMEPRAZOLE
     Dosage: 40 MILLIGRAM DAILY; REPORTED AS: NO EXACT INFORMATION ON DURATION AND INDICATION
     Route: 048
     Dates: start: 2015, end: 20151106
  11. ATORVASTATIN [Concomitant]
     Active Substance: ATORVASTATIN
     Route: 065

REACTIONS (5)
  - Hypotension [Recovered/Resolved]
  - Cold sweat [Recovered/Resolved]
  - Arterial haemorrhage [Not Recovered/Not Resolved]
  - Drug interaction [Recovered/Resolved]
  - Transfusion [Recovered/Resolved]

NARRATIVE: CASE EVENT DATE: 201511
